FAERS Safety Report 7352872-9 (Version None)
Quarter: 2011Q1

REPORT INFORMATION
  Report Type: 
  Country: None (occurrence: None)
  Receive Date: 20110315
  Receipt Date: 20110309
  Transmission Date: 20110831
  Serious: Yes (Hospitalization, Disabling)
  Sender: FDA-Public Use
  Company Number: US-ROCHE-762330

PATIENT
  Sex: Male
  Weight: 50.2 kg

DRUGS (14)
  1. FLUCONAZOLE [Concomitant]
     Dosage: START DATE OF 19 JANUARY 2011 FOR EVENT OF IRRITABILITY
     Dates: start: 20110104, end: 20110202
  2. SCOPOLAMINE [Concomitant]
     Dosage: REPORTED AS SCOPOLAMINE PATCH. TOTAL DAILY DOSE: 1.5/72HOURS
     Dates: start: 20110125
  3. LOPERAMIDE [Concomitant]
     Dosage: START DATE OF 25TH JANUARY 2011 FOR EVENT OF IRRITABILITY, DOSE: 2MG/PRN
     Dates: start: 20101224
  4. ZOFRAN [Concomitant]
     Dosage: START DATE OF 25TH JANUARY FOR EVENT OF IRRITABILITY
     Dates: start: 20101221
  5. PREVACID [Concomitant]
     Dosage: START DATE OF 25TH JANUARY 2011 FOR EVENT OF IRRITABILITY
     Dates: start: 20101207
  6. ZOLOFT [Concomitant]
     Dates: start: 20110125, end: 20110215
  7. ZANTAC [Concomitant]
     Dates: start: 20101104
  8. ZOLOFT [Concomitant]
     Dates: start: 20110111
  9. DEXAMETHASONE [Concomitant]
     Dosage: REPORTED AS DECADRON
     Dates: start: 20101104
  10. DEXAMETHASONE [Concomitant]
     Dates: start: 20110125, end: 20110210
  11. ASCORBIC ACID [Concomitant]
     Dates: start: 20110125
  12. CAPECITABINE [Suspect]
     Indication: BRAIN STEM GLIOMA
     Dosage: LAST DOSE PRIOR TO SAE REPORTED AS 1 FEBRUARY 2011. DOSE REPORTED AS 2750 MG BID ON FOLLOW UP
     Route: 048
     Dates: start: 20101108
  13. CALCIUM CARBONATE [Concomitant]
     Dates: start: 20110125
  14. MARINOL [Concomitant]
     Dates: start: 20110111

REACTIONS (2)
  - IRRITABILITY [None]
  - DYSARTHRIA [None]
